FAERS Safety Report 6358324-7 (Version None)
Quarter: 2009Q3

REPORT INFORMATION
  Report Type: 
  Country: None (occurrence: None)
  Receive Date: 20090916
  Receipt Date: 20090914
  Transmission Date: 20100115
  Serious: Yes (Death, Hospitalization, Other)
  Sender: FDA-Public Use
  Company Number: PHHY2009GB14957

PATIENT
  Age: 29 Year
  Sex: Male

DRUGS (9)
  1. CLOZAPINE [Suspect]
     Dosage: UNK
     Route: 048
     Dates: start: 20060706, end: 20081217
  2. ZAPONEX [Suspect]
     Indication: SCHIZOPHRENIA
     Dosage: UNK
     Route: 048
     Dates: start: 20081218
  3. ASPIRIN [Concomitant]
  4. DEPAKOTE [Concomitant]
  5. DIAZEPAM [Concomitant]
  6. EPILIM CHRONO [Concomitant]
  7. HYOSCINE HBR HYT [Concomitant]
     Dosage: UNK
  8. LEVOTHYROXINE SODIUM [Concomitant]
  9. SIMVASTATIN [Concomitant]

REACTIONS (10)
  - ABDOMINAL PAIN UPPER [None]
  - CONSTIPATION [None]
  - DEPRESSED LEVEL OF CONSCIOUSNESS [None]
  - DYSPNOEA [None]
  - ENEMA ADMINISTRATION [None]
  - FAT NECROSIS [None]
  - PANCREATIC INSUFFICIENCY [None]
  - PANCREATITIS ACUTE [None]
  - RESPIRATORY ARREST [None]
  - SOMNOLENCE [None]
